FAERS Safety Report 9666562 (Version 2)
Quarter: 2013Q4

REPORT INFORMATION
  Report Type: Spontaneous
  Country: US (occurrence: US)
  Receive Date: 20131104
  Receipt Date: 20131212
  Transmission Date: 20140711
  Serious: Yes (Hospitalization)
  Sender: FDA-Public Use
  Company Number: US-SUCAMPO PHARMA AMERICAS, INC-SPI201300750

PATIENT
  Age: 55 Year
  Sex: Female
  Weight: 77 kg

DRUGS (12)
  1. AMITIZA [Suspect]
     Indication: IRRITABLE BOWEL SYNDROME
     Dosage: 24 MCG, BID
     Route: 048
     Dates: start: 2010
  2. CARDIZEM CD [Concomitant]
  3. UNKNOWN [Concomitant]
  4. JANUVIA [Concomitant]
  5. UNKNOWN [Concomitant]
  6. DEXILANT [Concomitant]
  7. LIPITOR [Concomitant]
  8. ACTONEL [Concomitant]
  9. UNKNOWN [Concomitant]
  10. IMDUR [Concomitant]
  11. PLAVIX [Concomitant]
  12. SYMBYAX [Concomitant]

REACTIONS (2)
  - Blood magnesium decreased [Recovered/Resolved]
  - Blood potassium decreased [Recovered/Resolved]
